FAERS Safety Report 5257746-5 (Version None)
Quarter: 2007Q1

REPORT INFORMATION
  Report Type: 
  Country: None (occurrence: None)
  Receive Date: 20070307
  Receipt Date: 20070228
  Transmission Date: 20070707
  Serious: Yes (Death)
  Sender: FDA-Public Use
  Company Number: BR-JNJFOC-20070300515

PATIENT
  Age: 55 Year
  Sex: Male
  Weight: 55 kg

DRUGS (6)
  1. HALDOL [Suspect]
     Indication: AGITATION
     Route: 030
  2. HALDOL [Suspect]
     Indication: CONFUSIONAL STATE
     Route: 030
  3. DIGOXIN [Concomitant]
     Indication: CARDIAC DISORDER
     Dosage: ONE-HALF OF 0.25 MG TABLET DAILY
     Route: 048
  4. FUROSEMIDE [Concomitant]
     Indication: OEDEMA
     Route: 048
  5. GLUCOSE [Concomitant]
     Route: 042
  6. ASPIRIN [Concomitant]
     Indication: THROMBOSIS PROPHYLAXIS
     Route: 048

REACTIONS (3)
  - COMA [None]
  - TACHYPNOEA [None]
  - VENTRICULAR FIBRILLATION [None]
